FAERS Safety Report 19690221 (Version 1)
Quarter: 2021Q3

REPORT INFORMATION
  Report Type: Report from Study
  Country: US (occurrence: US)
  Receive Date: 20210812
  Receipt Date: 20210812
  Transmission Date: 20211014
  Serious: No
  Sender: FDA-Public Use
  Company Number: US-KYOWAKIRIN-2021BKK013610

PATIENT

DRUGS (1)
  1. CRYSVITA [Suspect]
     Active Substance: BUROSUMAB-TWZA
     Indication: HEREDITARY HYPOPHOSPHATAEMIC RICKETS
     Dosage: 15 MG, EVERY 14 DAYS
     Route: 058
     Dates: start: 20210721

REACTIONS (6)
  - Vomiting [Unknown]
  - Nausea [Unknown]
  - Illness [Unknown]
  - Ear infection [Unknown]
  - Incorrect dose administered [Not Recovered/Not Resolved]
  - Pyrexia [Unknown]

NARRATIVE: CASE EVENT DATE: 2021
